APPROVED DRUG PRODUCT: SOLIFENACIN SUCCINATE
Active Ingredient: SOLIFENACIN SUCCINATE
Strength: 5MG
Dosage Form/Route: TABLET;ORAL
Application: A091464 | Product #001 | TE Code: AB
Applicant: TEVA PHARMACEUTICALS USA
Approved: Apr 2, 2014 | RLD: No | RS: No | Type: RX